FAERS Safety Report 20870137 (Version 1)
Quarter: 2022Q2

REPORT INFORMATION
  Report Type: Spontaneous
  Country: US (occurrence: US)
  Receive Date: 20220525
  Receipt Date: 20220525
  Transmission Date: 20220721
  Serious: Yes (Other)
  Sender: FDA-Public Use
  Company Number: US-LUPIN PHARMACEUTICALS INC.-2022-07413

PATIENT
  Age: 14 Year
  Sex: Male
  Weight: 66 kg

DRUGS (6)
  1. FLUOCINONIDE [Suspect]
     Active Substance: FLUOCINONIDE
     Indication: Dermatitis atopic
     Dosage: UNK UNK, BID ( FOR A FEW WEEKS)
     Route: 061
  2. TRIAMCINOLONE [Suspect]
     Active Substance: TRIAMCINOLONE
     Indication: Dermatitis atopic
     Dosage: UNK UNK, BID (OINTMENT-FOR A FEW WEEKS)
     Route: 061
  3. PREDNISONE [Suspect]
     Active Substance: PREDNISONE
     Indication: Dermatitis atopic
     Dosage: 40 MG, QD, 15-DAY ORAL TAPER STARTING AT 40 MG DAILY
     Route: 048
  4. METHOTREXATE [Suspect]
     Active Substance: METHOTREXATE
     Indication: Dermatitis atopic
     Dosage: 17.5 MG, WEEKLY
     Route: 048
  5. DUPILUMAB [Concomitant]
     Active Substance: DUPILUMAB
     Indication: Dermatitis atopic
     Dosage: 600 MG, LOADING DOSE
     Route: 058
  6. DUPILUMAB [Concomitant]
     Active Substance: DUPILUMAB
     Dosage: 300 MG ( EVERY 2 WEEKS)
     Route: 058

REACTIONS (2)
  - Drug ineffective for unapproved indication [Unknown]
  - Off label use [Unknown]
